FAERS Safety Report 9014093 (Version 2)
Quarter: 2013Q1

REPORT INFORMATION
  Report Type: Spontaneous
  Country: IE (occurrence: IE)
  Receive Date: 20130115
  Receipt Date: 20130215
  Transmission Date: 20140127
  Serious: Yes (Other)
  Sender: FDA-Public Use
  Company Number: IE-BAXTER-2013BAX001498

PATIENT
  Age: 61 Year
  Sex: Male
  Weight: 82.7 kg

DRUGS (6)
  1. GLUCOSE 5% [Suspect]
     Indication: ADJUVANT THERAPY
     Route: 042
     Dates: start: 20130109, end: 20130109
  2. OXALIPLATIN [Suspect]
     Indication: ADJUVANT THERAPY
     Route: 042
     Dates: start: 20130109, end: 20130109
  3. 5% GLUCOSE [Suspect]
     Indication: PREMEDICATION
     Dates: start: 20130109
  4. ZOFRAN [Concomitant]
     Indication: PREMEDICATION
     Route: 042
     Dates: start: 20130109
  5. DEXAMETHASONE [Concomitant]
     Indication: PREMEDICATION
     Route: 042
     Dates: start: 20130109
  6. XELODA [Concomitant]
     Indication: PREMEDICATION
     Route: 048
     Dates: start: 20130109

REACTIONS (1)
  - Hypersensitivity [Recovered/Resolved]
